FAERS Safety Report 19877385 (Version 1)
Quarter: 2021Q3

REPORT INFORMATION
  Report Type: Spontaneous
  Country: FR (occurrence: FR)
  Receive Date: 20210924
  Receipt Date: 20210924
  Transmission Date: 20211014
  Serious: Yes (Other)
  Sender: FDA-Public Use
  Company Number: FR-SA-2021SA311296

PATIENT
  Sex: Female

DRUGS (1)
  1. AUBAGIO [Suspect]
     Active Substance: TERIFLUNOMIDE
     Indication: MULTIPLE SCLEROSIS
     Dosage: UNK
     Dates: start: 2017

REACTIONS (4)
  - Vitamin D deficiency [Unknown]
  - Menopause [Unknown]
  - Alopecia [Unknown]
  - Hypothyroidism [Unknown]

NARRATIVE: CASE EVENT DATE: 202108
